FAERS Safety Report 7869374-3 (Version None)
Quarter: 2011Q4

REPORT INFORMATION
  Report Type: 
  Country: None (occurrence: None)
  Receive Date: 20111028
  Receipt Date: 20110103
  Transmission Date: 20120403
  Serious: No
  Sender: FDA-Public Use
  Company Number: US-AMGEN-USASP2011000510

PATIENT
  Age: 60 Year
  Sex: Female

DRUGS (2)
  1. ENBREL [Suspect]
     Indication: RHEUMATOID ARTHRITIS
     Dosage: 50 MG, QWK
     Dates: start: 20090701, end: 20101205
  2. TREXALL [Concomitant]
     Dosage: 6 MG, QWK
     Dates: start: 20080101

REACTIONS (6)
  - RHEUMATOID ARTHRITIS [None]
  - INJECTION SITE PAIN [None]
  - OROPHARYNGEAL PAIN [None]
  - SINUSITIS [None]
  - EAR PAIN [None]
  - BRONCHITIS [None]
